FAERS Safety Report 23534144 (Version 4)
Quarter: 2025Q4

REPORT INFORMATION
  Report Type: Report from Study
  Country: US (occurrence: US)
  Receive Date: 20240216
  Receipt Date: 20251119
  Transmission Date: 20260118
  Serious: Yes (Other)
  Sender: ABBVIE
  Company Number: US-ABBVIE-5639136

PATIENT
  Age: 69 Year
  Sex: Female

DRUGS (2)
  1. SKYRIZI [Suspect]
     Active Substance: RISANKIZUMAB-RZAA
     Indication: Pouchitis
     Route: 058
     Dates: start: 20231117
  2. SKYRIZI [Suspect]
     Active Substance: RISANKIZUMAB-RZAA
     Indication: Pouchitis
     Route: 042
     Dates: start: 20231209

REACTIONS (8)
  - Small intestinal resection [Unknown]
  - Off label use [Unknown]
  - Crohn^s disease [Unknown]
  - Feeling abnormal [Unknown]
  - Colitis ulcerative [Unknown]
  - Gastrointestinal inflammation [Unknown]
  - Unevaluable event [Unknown]
  - Pain [Unknown]

NARRATIVE: CASE EVENT DATE: 20231117
